FAERS Safety Report 24713714 (Version 1)
Quarter: 2024Q4

REPORT INFORMATION
  Report Type: Spontaneous
  Country: US (occurrence: US)
  Receive Date: 20241209
  Receipt Date: 20241209
  Transmission Date: 20250115
  Serious: No
  Sender: REGENERON
  Company Number: US-REGENERON PHARMACEUTICALS, INC.-2024-052481

PATIENT
  Sex: Male

DRUGS (5)
  1. EYLEA [Suspect]
     Active Substance: AFLIBERCEPT
     Indication: Neovascular age-related macular degeneration
     Dosage: UNK, MONTHLY (FORMULATION: UNKNOWN)
     Route: 031
     Dates: start: 20230329, end: 20230329
  2. EYLEA [Suspect]
     Active Substance: AFLIBERCEPT
     Dosage: UNK, MONTHLY (FORMULATION: UNKNOWN)
     Route: 031
     Dates: start: 20230428, end: 20230428
  3. EYLEA [Suspect]
     Active Substance: AFLIBERCEPT
     Dosage: UNK, MONTHLY (FORMULATION: UNKNOWN)
     Route: 031
     Dates: start: 20230530, end: 20230530
  4. EYLEA [Suspect]
     Active Substance: AFLIBERCEPT
     Dosage: UNK, MONTHLY (FORMULATION: UNKNOWN)
     Route: 031
     Dates: start: 20230630, end: 20230630
  5. EYLEA [Suspect]
     Active Substance: AFLIBERCEPT
     Dosage: UNK, MONTHLY (FORMULATION: UNKNOWN)
     Route: 031
     Dates: start: 20230811, end: 20230811

REACTIONS (1)
  - Therapeutic response shortened [Unknown]

NARRATIVE: CASE EVENT DATE: 20230811
